FAERS Safety Report 12776725 (Version 3)
Quarter: 2017Q1

REPORT INFORMATION
  Report Type: Spontaneous
  Country: US (occurrence: US)
  Receive Date: 20160923
  Receipt Date: 20170228
  Transmission Date: 20170428
  Serious: Yes (Hospitalization, Other)
  Sender: FDA-Public Use
  Company Number: US-BAXALTA-2016BLT006739

PATIENT
  Age: 57 Year
  Sex: Female
  Weight: 81.64 kg

DRUGS (8)
  1. NITROGLYCERIN. [Concomitant]
     Active Substance: NITROGLYCERIN
     Indication: CARDIOMYOPATHY
     Dosage: UNK
  2. ASPIRIN                            /00002701/ [Concomitant]
     Active Substance: ASPIRIN
     Indication: CARDIOMYOPATHY
     Dosage: UNK
  3. HYQVIA [Suspect]
     Active Substance: HUMAN IMMUNOGLOBULIN G\HYALURONIDASE RECOMBINANT HUMAN
     Dosage: 40 G, EVERY 3 WK
     Route: 058
     Dates: start: 20160802
  4. HYQVIA [Suspect]
     Active Substance: HUMAN IMMUNOGLOBULIN G\HYALURONIDASE RECOMBINANT HUMAN
     Indication: IMMUNODEFICIENCY COMMON VARIABLE
     Dosage: 40 G, EVERY 3 WK
     Route: 058
     Dates: start: 20160622
  5. HYQVIA [Suspect]
     Active Substance: HUMAN IMMUNOGLOBULIN G\HYALURONIDASE RECOMBINANT HUMAN
     Dosage: 40 G, EVERY 3 WK
     Route: 058
     Dates: start: 201501
  6. HYQVIA [Suspect]
     Active Substance: HUMAN IMMUNOGLOBULIN G\HYALURONIDASE RECOMBINANT HUMAN
     Dosage: 40 G, EVERY 3 WK
     Route: 058
     Dates: start: 20160912
  7. HYQVIA [Suspect]
     Active Substance: HUMAN IMMUNOGLOBULIN G\HYALURONIDASE RECOMBINANT HUMAN
     Dosage: 40 G, EVERY 3 WK
     Route: 058
     Dates: start: 20160712
  8. HYQVIA [Suspect]
     Active Substance: HUMAN IMMUNOGLOBULIN G\HYALURONIDASE RECOMBINANT HUMAN
     Dosage: 40 G, EVERY 3 WK
     Route: 058
     Dates: start: 20160822

REACTIONS (15)
  - Sjogren^s syndrome [Not Recovered/Not Resolved]
  - Muscular weakness [Recovering/Resolving]
  - Infusion site pain [Not Recovered/Not Resolved]
  - Dyskinesia [Not Recovered/Not Resolved]
  - Tooth abscess [Recovering/Resolving]
  - Foot deformity [Recovered/Resolved]
  - Rheumatoid arthritis [Not Recovered/Not Resolved]
  - Head injury [Recovered/Resolved]
  - Sleep apnoea syndrome [Not Recovered/Not Resolved]
  - Feeling abnormal [Recovering/Resolving]
  - Tendon disorder [Recovered/Resolved]
  - Mental impairment [Recovering/Resolving]
  - Road traffic accident [Recovered/Resolved]
  - Migraine [Not Recovered/Not Resolved]
  - Dry eye [Not Recovered/Not Resolved]

NARRATIVE: CASE EVENT DATE: 201502
